FAERS Safety Report 4409984-9 (Version None)
Quarter: 2004Q3

REPORT INFORMATION
  Report Type: 
  Country: None (occurrence: None)
  Receive Date: 20040728
  Receipt Date: 20030129
  Transmission Date: 20050211
  Serious: Yes (Hospitalization)
  Sender: FDA-Public Use
  Company Number: FR-ROCHE-330331

PATIENT
  Sex: Female
  Weight: 0.8 kg

DRUGS (4)
  1. LOXEN [Suspect]
     Indication: DRUG USE FOR UNKNOWN INDICATION
     Dates: start: 20011010, end: 20011024
  2. CORTANCYL [Suspect]
     Indication: DRUG USE FOR UNKNOWN INDICATION
     Dates: start: 20011010, end: 20011024
  3. PROPULSID [Suspect]
     Indication: DRUG USE FOR UNKNOWN INDICATION
     Dates: end: 20011024
  4. GAVISCON [Suspect]
     Indication: DRUG USE FOR UNKNOWN INDICATION

REACTIONS (8)
  - CAESAREAN SECTION [None]
  - CONGENITAL ATRIAL SEPTAL DEFECT [None]
  - DRUG EXPOSURE DURING PREGNANCY [None]
  - FOETAL GROWTH RETARDATION [None]
  - NECROTISING COLITIS [None]
  - PREMATURE BABY [None]
  - PREMATURE LABOUR [None]
  - PULMONARY VALVE STENOSIS [None]
